FAERS Safety Report 7621063-6 (Version None)
Quarter: 2011Q3

REPORT INFORMATION
  Report Type: 
  Country: None (occurrence: None)
  Receive Date: 20110719
  Receipt Date: 20100628
  Transmission Date: 20111222
  Serious: No
  Sender: FDA-Public Use
  Company Number: US-KINGPHARMUSA00001-K201000818

PATIENT
  Age: 58 Year
  Sex: Female
  Weight: 47.619 kg

DRUGS (4)
  1. FISH OIL [Concomitant]
     Indication: BLOOD CHOLESTEROL
     Dosage: UNK, QD
  2. CALCIUM CARBONATE [Concomitant]
     Indication: OSTEOPOROSIS
     Dosage: UNK, QD
  3. VITAMIN B COMPLEX CAP [Concomitant]
     Dosage: UNK, QD
  4. LEVOXYL [Suspect]
     Indication: HYPOTHYROIDISM
     Dosage: 25 MCG, QD
     Route: 048
     Dates: start: 20100430

REACTIONS (3)
  - TRICHORRHEXIS [None]
  - HAIR TEXTURE ABNORMAL [None]
  - ALOPECIA [None]
